FAERS Safety Report 25720800 (Version 2)
Quarter: 2025Q3

REPORT INFORMATION
  Report Type: Report from Study
  Country: US (occurrence: US)
  Receive Date: 20250825
  Receipt Date: 20250829
  Transmission Date: 20251020
  Serious: Yes (Other)
  Sender: ABBVIE
  Company Number: US-ABBVIE-6423478

PATIENT
  Age: 73 Year
  Sex: Female

DRUGS (2)
  1. RESTASIS [Suspect]
     Active Substance: CYCLOSPORINE
     Indication: Dry eye
     Dosage: FORM STRENGTH: 1 DROP
     Route: 047
     Dates: start: 20250814
  2. RESTASIS [Suspect]
     Active Substance: CYCLOSPORINE
     Route: 047

REACTIONS (8)
  - Cataract [Unknown]
  - Dry eye [Recovering/Resolving]
  - Paranasal sinus discomfort [Recovering/Resolving]
  - Nasal discomfort [Recovering/Resolving]
  - Off label use [Unknown]
  - Sinus disorder [Unknown]
  - Eye irritation [Unknown]
  - Vision blurred [Unknown]

NARRATIVE: CASE EVENT DATE: 20250801
